FAERS Safety Report 12233866 (Version 1)
Quarter: 2016Q2

REPORT INFORMATION
  Report Type: Spontaneous
  Country: US (occurrence: None)
  Receive Date: 20160401
  Receipt Date: 20160401
  Transmission Date: 20160815
  Serious: No
  Sender: FDA-Public Use
  Company Number: None

PATIENT
  Age: 77 Year
  Sex: Male

DRUGS (23)
  1. ENBREL [Suspect]
     Active Substance: ETANERCEPT
     Indication: RHEUMATOID ARTHRITIS
     Dosage: QWK
     Route: 058
     Dates: start: 20080222
  2. GABAPENTIN. [Concomitant]
     Active Substance: GABAPENTIN
  3. TRIAMCINOLONE [Concomitant]
     Active Substance: TRIAMCINOLONE
  4. CIALIS [Concomitant]
     Active Substance: TADALAFIL
  5. DULERA [Concomitant]
     Active Substance: FORMOTEROL FUMARATE DIHYDRATE\MOMETASONE FUROATE
  6. DUREZOL [Concomitant]
     Active Substance: DIFLUPREDNATE
  7. HC VALERATE [Concomitant]
  8. SMZ-TMP [Concomitant]
     Active Substance: SULFAMETHOXAZOLE\TRIMETHOPRIM
  9. VOLTAREN [Concomitant]
     Active Substance: DICLOFENAC SODIUM
  10. IRON [Concomitant]
     Active Substance: IRON
  11. PREDNISONE. [Concomitant]
     Active Substance: PREDNISONE
  12. FOLIC ACID. [Concomitant]
     Active Substance: FOLIC ACID
  13. DIOVAN [Concomitant]
     Active Substance: VALSARTAN
  14. CEPHALEXIN. [Concomitant]
     Active Substance: CEPHALEXIN
  15. AMOX/K CLAV [Concomitant]
     Active Substance: AMOXICILLIN\CLAVULANATE POTASSIUM
  16. OFLOXACIN. [Concomitant]
     Active Substance: OFLOXACIN
  17. HYDROCO/APAP [Concomitant]
     Active Substance: ACETAMINOPHEN\HYDROCODONE
  18. CEFDINIR. [Concomitant]
     Active Substance: CEFDINIR
  19. CLINDAMYCIN [Concomitant]
     Active Substance: CLINDAMYCIN\CLINDAMYCIN PHOSPHATE
  20. LEVAQUIN [Concomitant]
     Active Substance: LEVOFLOXACIN
  21. PLAQUENIL [Concomitant]
     Active Substance: HYDROXYCHLOROQUINE SULFATE
  22. SULFASALAZINE HYDPOL/CPM [Concomitant]
  23. ILEVRO [Concomitant]
     Active Substance: NEPAFENAC

REACTIONS (3)
  - Bronchitis [None]
  - Drug dose omission [None]
  - Malaise [None]

NARRATIVE: CASE EVENT DATE: 201603
